FAERS Safety Report 7730330-7 (Version None)
Quarter: 2011Q3

REPORT INFORMATION
  Report Type: 
  Country: None (occurrence: None)
  Receive Date: 20110906
  Receipt Date: 20110823
  Transmission Date: 20111222
  Serious: No
  Sender: FDA-Public Use
  Company Number: US-ELI_LILLY_AND_COMPANY-US201108006422

PATIENT
  Sex: Female

DRUGS (12)
  1. HYDROCHLOROTHIAZID [Concomitant]
  2. SIMVASTATIN [Concomitant]
  3. PREDNISONE [Concomitant]
     Indication: ARTERITIS
  4. AMLODIPINE [Concomitant]
  5. OXYCODONE HCL AND ACETAMINOPHEN [Concomitant]
  6. PROTOZOL                           /00012501/ [Concomitant]
  7. LEVATOL [Concomitant]
  8. ERGOCALCIFEROL [Concomitant]
  9. FORTEO [Suspect]
     Indication: OSTEOPOROSIS
     Dosage: 20 UG, QD
     Route: 065
     Dates: start: 20110730
  10. FUROSEMIDE [Concomitant]
  11. FORTEO [Suspect]
     Dosage: 20 UG, QD
     Route: 065
  12. SULFAMETHOXAZOLE AND TRIMETHOPRIM DOUBLE STRENGTH [Concomitant]

REACTIONS (2)
  - DRUG DOSE OMISSION [None]
  - INCORRECT DOSE ADMINISTERED BY DEVICE [None]
